FAERS Safety Report 5632290-1 (Version None)
Quarter: 2008Q1

REPORT INFORMATION
  Report Type: 
  Country: None (occurrence: None)
  Receive Date: 20080220
  Receipt Date: 20080218
  Transmission Date: 20080703
  Serious: Yes (Death, Hospitalization, Other)
  Sender: FDA-Public Use
  Company Number: AU-SANOFI-SYNTHELABO-A01200701958

PATIENT
  Sex: Male

DRUGS (3)
  1. WARFARIN SODIUM [Concomitant]
     Indication: HEART VALVE REPLACEMENT
     Route: 048
     Dates: start: 20060101, end: 20070101
  2. ALCOHOL [Suspect]
     Indication: ALCOHOL USE
     Route: 048
     Dates: start: 20070203, end: 20070203
  3. STILNOX [Suspect]
     Indication: INSOMNIA
     Route: 048
     Dates: start: 20070120, end: 20070203

REACTIONS (2)
  - AMNESIA [None]
  - ROAD TRAFFIC ACCIDENT [None]
